FAERS Safety Report 7083543-4 (Version None)
Quarter: 2010Q4

REPORT INFORMATION
  Report Type: 
  Country: None (occurrence: None)
  Receive Date: 20101104
  Receipt Date: 20101029
  Transmission Date: 20110411
  Serious: Yes (Death, Other)
  Sender: FDA-Public Use
  Company Number: JP-ROCHE-726394

PATIENT
  Sex: Male
  Weight: 69 kg

DRUGS (40)
  1. TOCILIZUMAB [Suspect]
     Indication: RHEUMATOID ARTHRITIS
     Route: 041
     Dates: start: 20080912, end: 20080912
  2. TOCILIZUMAB [Suspect]
     Route: 041
     Dates: start: 20081012, end: 20081012
  3. TOCILIZUMAB [Suspect]
     Route: 041
     Dates: start: 20081107, end: 20081107
  4. TOCILIZUMAB [Suspect]
     Route: 041
     Dates: start: 20081202, end: 20081202
  5. TOCILIZUMAB [Suspect]
     Route: 041
     Dates: start: 20081230, end: 20081230
  6. TOCILIZUMAB [Suspect]
     Route: 041
     Dates: start: 20090130, end: 20090130
  7. TOCILIZUMAB [Suspect]
     Route: 041
     Dates: start: 20090227, end: 20090227
  8. TOCILIZUMAB [Suspect]
     Route: 041
     Dates: start: 20090327, end: 20090327
  9. TOCILIZUMAB [Suspect]
     Route: 041
     Dates: start: 20090428, end: 20090428
  10. TOCILIZUMAB [Suspect]
     Route: 041
     Dates: start: 20090528, end: 20090528
  11. TOCILIZUMAB [Suspect]
     Route: 041
     Dates: start: 20090626, end: 20090626
  12. TOCILIZUMAB [Suspect]
     Route: 041
     Dates: start: 20090723, end: 20090723
  13. TOCILIZUMAB [Suspect]
     Route: 041
     Dates: start: 20090821, end: 20090821
  14. TOCILIZUMAB [Suspect]
     Route: 041
     Dates: start: 20090917, end: 20090917
  15. TOCILIZUMAB [Suspect]
     Route: 041
     Dates: start: 20091015, end: 20091015
  16. TOCILIZUMAB [Suspect]
     Route: 041
     Dates: start: 20091112, end: 20091112
  17. TOCILIZUMAB [Suspect]
     Route: 041
     Dates: start: 20091210, end: 20091210
  18. TOCILIZUMAB [Suspect]
     Route: 041
     Dates: start: 20100107, end: 20100107
  19. TOCILIZUMAB [Suspect]
     Route: 041
     Dates: start: 20100204, end: 20100204
  20. TOCILIZUMAB [Suspect]
     Route: 041
     Dates: start: 20100304, end: 20100304
  21. TOCILIZUMAB [Suspect]
     Route: 041
     Dates: start: 20100331, end: 20100331
  22. TOCILIZUMAB [Suspect]
     Route: 041
     Dates: start: 20100430, end: 20100430
  23. TOCILIZUMAB [Suspect]
     Route: 041
     Dates: start: 20100528, end: 20100528
  24. TOCILIZUMAB [Suspect]
     Route: 041
     Dates: start: 20100623, end: 20100623
  25. AZULFIDINE [Concomitant]
     Dosage: DOSEFORM: ENTERIC COATED DRUG
     Route: 048
     Dates: start: 20081122
  26. MEDROL [Concomitant]
     Route: 048
     Dates: end: 20080820
  27. MEDROL [Concomitant]
     Route: 048
     Dates: start: 20080821, end: 20081204
  28. MEDROL [Concomitant]
     Route: 048
     Dates: start: 20081205
  29. MEDROL [Concomitant]
     Route: 048
  30. CELCOX [Concomitant]
     Route: 048
  31. ADALAT CC [Concomitant]
     Route: 048
  32. ARTIST [Concomitant]
     Route: 048
     Dates: end: 20081106
  33. ARTIST [Concomitant]
     Route: 048
     Dates: end: 20081107
  34. OLMETEC [Concomitant]
     Route: 048
  35. PLAVIX [Concomitant]
     Route: 048
  36. BENECID [Concomitant]
     Route: 048
  37. PARIET [Concomitant]
     Route: 048
  38. NORVASC [Concomitant]
     Route: 048
  39. VOLTAREN [Concomitant]
     Route: 054
  40. ZYLORIC [Concomitant]
     Route: 048

REACTIONS (4)
  - DEATH [None]
  - GASTRIC ULCER [None]
  - PURPURA [None]
  - THROMBOSIS [None]
